FAERS Safety Report 13880651 (Version 2)
Quarter: 2017Q3

REPORT INFORMATION
  Report Type: Spontaneous
  Country: GB (occurrence: GB)
  Receive Date: 20170818
  Receipt Date: 20170831
  Transmission Date: 20171127
  Serious: Yes (Disabling)
  Sender: FDA-Public Use
  Company Number: GB-PFIZER INC-2017352745

PATIENT
  Age: 34 Year
  Sex: Female
  Weight: 73.47 kg

DRUGS (2)
  1. VENLAFAXINE HCL [Suspect]
     Active Substance: VENLAFAXINE HYDROCHLORIDE
     Dosage: 18 MG, UNK
     Dates: start: 201707, end: 201707
  2. VENLAFAXINE HCL [Suspect]
     Active Substance: VENLAFAXINE HYDROCHLORIDE
     Indication: DEPRESSION
     Dosage: 225 MG, UNK
     Dates: start: 2008, end: 201707

REACTIONS (3)
  - Depression suicidal [Unknown]
  - Hypomania [Recovering/Resolving]
  - Abortion spontaneous [Unknown]
